FAERS Safety Report 5174034-6 (Version None)
Quarter: 2006Q4

REPORT INFORMATION
  Report Type: 
  Country: None (occurrence: None)
  Receive Date: 20061214
  Receipt Date: 20060410
  Transmission Date: 20070319
  Serious: No
  Sender: FDA-Public Use
  Company Number: US-AMGEN-US175669

PATIENT
  Sex: Female
  Weight: 90.8 kg

DRUGS (4)
  1. ENBREL [Suspect]
     Indication: RHEUMATOID ARTHRITIS
     Route: 058
     Dates: start: 20050617
  2. TYLENOL [Concomitant]
  3. FOSAMAX [Concomitant]
  4. NAPROXEN [Concomitant]
     Dates: start: 20050629

REACTIONS (1)
  - EYE INFLAMMATION [None]
